FAERS Safety Report 19652218 (Version 1)
Quarter: 2021Q3

REPORT INFORMATION
  Report Type: Spontaneous
  Country: FR (occurrence: FR)
  Receive Date: 20210803
  Receipt Date: 20210803
  Transmission Date: 20211014
  Serious: Yes (Death, Other)
  Sender: FDA-Public Use
  Company Number: FR-SA-2021SA254662

PATIENT
  Age: 14 Year
  Sex: Male
  Weight: 60 kg

DRUGS (2)
  1. THYMOGLOBULINE [Suspect]
     Active Substance: LAPINE T-LYMPHOCYTE IMMUNE GLOBULIN
     Indication: BONE MARROW CONDITIONING REGIMEN
     Dosage: 7.5 MG/KG, QD
     Route: 041
     Dates: start: 20210705, end: 20210705
  2. FLUDARA [Suspect]
     Active Substance: FLUDARABINE PHOSPHATE
     Indication: BONE MARROW CONDITIONING REGIMEN
     Dosage: 40 MG/M2, QD
     Route: 041
     Dates: start: 20210704, end: 20210705

REACTIONS (1)
  - Pulmonary haemorrhage [Fatal]

NARRATIVE: CASE EVENT DATE: 20210705
